FAERS Safety Report 16479038 (Version 3)
Quarter: 2019Q3

REPORT INFORMATION
  Report Type: Spontaneous
  Country: DE (occurrence: DE)
  Receive Date: 20190626
  Receipt Date: 20190826
  Transmission Date: 20191004
  Serious: Yes (Other)
  Sender: FDA-Public Use
  Company Number: DE-PFIZER INC-2019264064

PATIENT
  Age: 63 Year
  Sex: Female

DRUGS (3)
  1. BELOC ZOK [Concomitant]
     Active Substance: METOPROLOL SUCCINATE
     Dosage: 95 MG, UNK
  2. FALITHROM [Concomitant]
     Active Substance: PHENPROCOUMON
     Dosage: UNK
     Dates: start: 1997
  3. ACCUZIDE [Suspect]
     Active Substance: HYDROCHLOROTHIAZIDE\QUINAPRIL HYDROCHLORIDE
     Indication: HYPERTENSION
     Dosage: 1 DF, 1X/DAY (STRENGTH: 20 MG/ 12.5 MG)
     Dates: start: 2005, end: 20190724

REACTIONS (22)
  - Type 2 diabetes mellitus [Unknown]
  - Blood triglycerides increased [Unknown]
  - Cholelithiasis [Unknown]
  - Arthralgia [Unknown]
  - Arthritis [Unknown]
  - Back pain [Unknown]
  - Choroid neoplasm [Unknown]
  - Blood uric acid increased [Unknown]
  - Nervousness [Unknown]
  - Paraesthesia [Unknown]
  - Osteoarthritis [Unknown]
  - Hepatic neoplasm [Not Recovered/Not Resolved]
  - Intraocular pressure increased [Unknown]
  - Blood cholesterol increased [Unknown]
  - Vasculitis [Unknown]
  - Rash macular [Not Recovered/Not Resolved]
  - Insomnia [Unknown]
  - Spinal pain [Unknown]
  - Dry mouth [Unknown]
  - Visual acuity reduced [Unknown]
  - Sinusitis [Unknown]
  - Swelling face [Unknown]

NARRATIVE: CASE EVENT DATE: 2006
